FAERS Safety Report 21333910 (Version 1)
Quarter: 2022Q3

REPORT INFORMATION
  Report Type: Spontaneous
  Country: US (occurrence: US)
  Receive Date: 20220914
  Receipt Date: 20220914
  Transmission Date: 20221027
  Serious: No
  Sender: FDA-Public Use
  Company Number: US-MAYNE PHARMA-2021MYN000553

PATIENT
  Age: 74 Year
  Sex: Female

DRUGS (1)
  1. SOLTAMOX [Suspect]
     Active Substance: TAMOXIFEN CITRATE
     Indication: Product used for unknown indication
     Dosage: 20 MG, QD
     Route: 048
     Dates: start: 20210325

REACTIONS (5)
  - Back pain [Unknown]
  - Dyspnoea [Unknown]
  - Alopecia [Unknown]
  - Fall [Unknown]
  - Constipation [Unknown]
